FAERS Safety Report 5203054-8 (Version None)
Quarter: 2006Q4

REPORT INFORMATION
  Report Type: 
  Country: None (occurrence: None)
  Receive Date: 20061016
  Receipt Date: 20060801
  Transmission Date: 20070319
  Serious: Yes (Other)
  Sender: FDA-Public Use
  Company Number: 2006094526

PATIENT

DRUGS (1)
  1. NEURONTIN [Suspect]
     Indication: DRUG USE FOR UNKNOWN INDICATION
     Dosage: 300 MG (100 MG, 3 IN 1 D)

REACTIONS (1)
  - SYNCOPE [None]
